FAERS Safety Report 6186613-8 (Version None)
Quarter: 2009Q2

REPORT INFORMATION
  Report Type: 
  Country: None (occurrence: None)
  Receive Date: 20090507
  Receipt Date: 20090507
  Transmission Date: 20091009
  Serious: No
  Sender: FDA-Public Use
  Company Number: None

PATIENT
  Age: 68 Year
  Sex: Female
  Weight: 74.3899 kg

DRUGS (2)
  1. LISINOPRIL [Suspect]
     Indication: HYPERTENSION
     Dosage: 10MG/TWICE DAILY ORAL
     Route: 048
     Dates: start: 20081201
  2. LISINOPRIL [Suspect]
     Indication: THROMBOSIS
     Dosage: 10MG/TWICE DAILY ORAL
     Route: 048
     Dates: start: 20081201

REACTIONS (2)
  - BLOOD PRESSURE INADEQUATELY CONTROLLED [None]
  - DRUG INEFFECTIVE [None]
